FAERS Safety Report 4914890-7 (Version None)
Quarter: 2006Q1

REPORT INFORMATION
  Report Type: 
  Country: None (occurrence: None)
  Receive Date: 20060217
  Receipt Date: 19991112
  Transmission Date: 20060701
  Serious: Yes (Hospitalization)
  Sender: FDA-Public Use
  Company Number: US-BOEHRINGER INGELHEIM PHARMACEUTICALS, INC.-1999-BP-01444

PATIENT
  Sex: Male

DRUGS (4)
  1. VIRAMUNE [Suspect]
     Indication: HIV INFECTION
     Route: 048
     Dates: start: 19980817
  2. D4T [Suspect]
     Indication: HIV INFECTION
     Dates: start: 19980817
  3. NELFINAVIR [Suspect]
     Indication: HIV INFECTION
     Dates: start: 19980817
  4. 3TC (LAMIVUDINE) [Suspect]
     Indication: HIV INFECTION
     Dates: start: 19990707

REACTIONS (2)
  - PANCREATITIS RELAPSING [None]
  - TENDERNESS [None]
